FAERS Safety Report 5263378-5 (Version None)
Quarter: 2007Q1

REPORT INFORMATION
  Report Type: 
  Country: None (occurrence: None)
  Receive Date: 20070313
  Receipt Date: 20070305
  Transmission Date: 20070707
  Serious: Yes (Other)
  Sender: FDA-Public Use
  Company Number: FR-ELI_LILLY_AND_COMPANY-FR200608005700

PATIENT
  Age: 35 Year
  Sex: Male

DRUGS (4)
  1. ZYPREXA [Suspect]
     Indication: SCHIZOPHRENIA
     Dosage: 20 MG, DAILY (1/D)
     Route: 048
     Dates: start: 20050201, end: 20060824
  2. DEPAKENE [Concomitant]
     Indication: SCHIZOPHRENIA
     Dosage: 500 MG, DAILY (1/D)
     Route: 048
  3. TERCIAN [Concomitant]
     Indication: SCHIZOPHRENIA
     Route: 048
  4. BENZODIAZEPINE DERIVATIVES [Concomitant]
     Indication: SCHIZOPHRENIA
     Route: 048

REACTIONS (1)
  - HEPATITIS VIRAL [None]
